FAERS Safety Report 24753345 (Version 1)
Quarter: 2024Q4

REPORT INFORMATION
  Report Type: Spontaneous
  Country: GB (occurrence: GB)
  Receive Date: 20241219
  Receipt Date: 20241219
  Transmission Date: 20250115
  Serious: Yes (Other)
  Sender: ACCORD
  Company Number: None

PATIENT
  Age: 76 Year
  Sex: Female
  Weight: 127 kg

DRUGS (1)
  1. GLYCOPYRROLATE [Suspect]
     Active Substance: GLYCOPYRROLATE
     Indication: Product used for unknown indication
     Dosage: STRENGTH: 600MICROGRAMS/3ML

REACTIONS (3)
  - Periorbital swelling [Recovered/Resolved]
  - Urticaria [Recovered/Resolved]
  - Erythema [Unknown]
